FAERS Safety Report 19880470 (Version 9)
Quarter: 2022Q3

REPORT INFORMATION
  Report Type: Report from Study
  Country: US (occurrence: US)
  Receive Date: 20210924
  Receipt Date: 20220719
  Transmission Date: 20221026
  Serious: Yes (Hospitalization)
  Sender: FDA-Public Use
  Company Number: US-RIGEL PHARMACEUTICALS, INC.-2021FOS000610

PATIENT
  Age: 27 Year
  Sex: Male
  Weight: 93.5 kg

DRUGS (22)
  1. FOSTAMATINIB DISODIUM [Suspect]
     Active Substance: FOSTAMATINIB DISODIUM
     Indication: Immune thrombocytopenia
     Dosage: 100 MG, BID
     Route: 048
     Dates: start: 20210910
  2. ASTELIN [Concomitant]
     Active Substance: AZELASTINE HYDROCHLORIDE
     Indication: Product used for unknown indication
     Dosage: 1 SPRAY (137 MCG) INTO EACH NOSTRIL, BID
     Route: 045
  3. KLONOPIN [Concomitant]
     Active Substance: CLONAZEPAM
     Indication: Product used for unknown indication
     Dosage: 1 MG, QHS
     Route: 048
  4. ADDERALL [Concomitant]
     Active Substance: AMPHETAMINE ASPARTATE\AMPHETAMINE SULFATE\DEXTROAMPHETAMINE SACCHARATE\DEXTROAMPHETAMINE SULFATE
     Indication: Product used for unknown indication
     Dosage: 20 MG, QD
     Route: 048
  5. LOVENOX [Concomitant]
     Active Substance: ENOXAPARIN SODIUM
     Indication: Product used for unknown indication
     Dosage: 90 MG, QD
     Dates: start: 20210830
  6. TRETINOIN [Concomitant]
     Active Substance: TRETINOIN
     Indication: Product used for unknown indication
     Dosage: UNK, QHS
     Route: 061
  7. ELIQUIS [Concomitant]
     Active Substance: APIXABAN
     Indication: Pulmonary embolism
     Dosage: 5 MG, BID
     Dates: start: 2021
  8. IMMUNE GLOBULIN NOS [Concomitant]
     Active Substance: IMMUNE GLOBULIN NOS
     Indication: Immune thrombocytopenia
     Dosage: 85 GRAM, PRN
     Route: 042
     Dates: start: 20210823, end: 20210909
  9. OPTIRAY [Concomitant]
     Active Substance: IOVERSOL
     Indication: Product used for unknown indication
     Dosage: 100 ML, UNK
     Route: 042
     Dates: start: 20210830
  10. CALCIUM CARBONATE [Concomitant]
     Active Substance: CALCIUM CARBONATE
     Indication: Product used for unknown indication
     Dosage: 500 MG, UNK
     Route: 048
     Dates: start: 20210831
  11. SODIUM CHLORIDE [Concomitant]
     Active Substance: SODIUM CHLORIDE
     Indication: Product used for unknown indication
     Dosage: 10 ML, UNK
     Route: 042
     Dates: start: 20210831
  12. ROZEREM [Concomitant]
     Active Substance: RAMELTEON
     Indication: Product used for unknown indication
     Dosage: 8 MG, UNK
     Route: 048
     Dates: start: 20210831
  13. XARELTO [Concomitant]
     Active Substance: RIVAROXABAN
     Indication: Product used for unknown indication
     Dosage: 15 MG, UNK
     Route: 048
     Dates: start: 20210831
  14. DECADRON [Concomitant]
     Active Substance: DEXAMETHASONE
     Indication: Immune thrombocytopenia
     Dosage: 40 MG, SINGLE
     Route: 048
     Dates: start: 20210825, end: 20210825
  15. DECADRON [Concomitant]
     Active Substance: DEXAMETHASONE
     Dosage: 40 MG, QD
     Route: 042
     Dates: start: 20210822, end: 20210824
  16. HEPARIN [Concomitant]
     Active Substance: HEPARIN SODIUM
     Indication: Product used for unknown indication
     Dosage: TITRATED, UNK
     Route: 042
     Dates: start: 20210903
  17. HAEMOPHILUS B CONJUGATE VACCINE [Concomitant]
     Active Substance: HAEMOPHILUS B CONJUGATE VACCINE
     Indication: Product used for unknown indication
     Dosage: 10 ML, UNK
     Route: 030
     Dates: start: 20210909
  18. BEXSERO [Concomitant]
     Active Substance: NEISSERIA MENINGITIDIS GROUP B FHBP FUSION PROTEIN ANTIGEN\NEISSERIA MENINGITIDIS GROUP B NADA PROTE
     Indication: Product used for unknown indication
     Dosage: 50-50-50-25 MCG/0.5ML, UNK
     Route: 030
     Dates: start: 20210908
  19. MENVEO [Concomitant]
     Active Substance: NEISSERIA MENINGITIDIS GROUP A CAPSULAR OLIGOSACCHARIDE DIPHTHERIA CRM197 PROTEIN CONJUGATE ANTIGEN\
     Indication: Product used for unknown indication
     Dosage: 10-5 MCG/0.5ML
     Route: 030
     Dates: start: 20210909
  20. PREVNAR 13 [Concomitant]
     Active Substance: PNEUMOCOCCAL 13-VALENT CONJUGATE VACCINE
     Indication: Product used for unknown indication
     Dosage: 0.5 ML, UNK
     Route: 030
     Dates: start: 20210908
  21. ACETAMINOPHEN [Concomitant]
     Active Substance: ACETAMINOPHEN
     Indication: Product used for unknown indication
     Dosage: 650 MG, UNK
     Route: 048
     Dates: start: 20210908
  22. DIPHENHYDRAMINE HYDROCHLORIDE [Concomitant]
     Active Substance: DIPHENHYDRAMINE HYDROCHLORIDE
     Indication: Product used for unknown indication
     Dosage: 25 MG, UNK
     Route: 048
     Dates: start: 20210908

REACTIONS (5)
  - Headache [Recovered/Resolved]
  - Chest pain [Recovered/Resolved]
  - Night sweats [Recovered/Resolved]
  - Dyspnoea [Recovered/Resolved]
  - Chills [Recovered/Resolved]

NARRATIVE: CASE EVENT DATE: 20210913
